FAERS Safety Report 4316199-1 (Version None)
Quarter: 2004Q1

REPORT INFORMATION
  Report Type: 
  Country: None (occurrence: None)
  Receive Date: 20040312
  Receipt Date: 20040311
  Transmission Date: 20041129
  Serious: Yes (Hospitalization)
  Sender: FDA-Public Use
  Company Number: US-GLAXOSMITHKLINE-A0502352A

PATIENT
  Age: 58 Year
  Sex: Male

DRUGS (4)
  1. AVANDIA [Suspect]
     Route: 048
     Dates: start: 20040226, end: 20040226
  2. GLUCOPHAGE [Concomitant]
  3. CARDIAC MEDICATION [Concomitant]
  4. ANTIDIABETIC (UNSPECIFIED) [Concomitant]

REACTIONS (2)
  - COMA [None]
  - CONVULSION [None]
